FAERS Safety Report 11808066 (Version 1)
Quarter: 2015Q4

REPORT INFORMATION
  Report Type: Report from Study
  Country: ZA (occurrence: ZA)
  Receive Date: 20151207
  Receipt Date: 20151207
  Transmission Date: 20160305
  Serious: Yes (Other)
  Sender: FDA-Public Use
  Company Number: PHHY2015ZA157357

PATIENT
  Sex: Female

DRUGS (2)
  1. ACLASTA [Suspect]
     Active Substance: ZOLEDRONIC ACID
     Dosage: 5MG/100ML, Q12MO
     Route: 042
     Dates: start: 201311
  2. ACLASTA [Suspect]
     Active Substance: ZOLEDRONIC ACID
     Indication: OSTEOPOROSIS
     Dosage: 5MG/100ML, Q12MO
     Route: 042
     Dates: start: 2012

REACTIONS (2)
  - Haemoglobin decreased [Unknown]
  - Oesophageal ulcer haemorrhage [Unknown]
